FAERS Safety Report 8272016-9 (Version None)
Quarter: 2012Q2

REPORT INFORMATION
  Report Type: 
  Country: None (occurrence: None)
  Receive Date: 20120410
  Receipt Date: 20120403
  Transmission Date: 20120825
  Serious: Yes (Hospitalization)
  Sender: FDA-Public Use
  Company Number: US-VERTEX PHARMACEUTICALS INC.-AE-2012-004252

PATIENT
  Sex: Female
  Weight: 59.928 kg

DRUGS (3)
  1. INCIVEK [Suspect]
     Indication: HEPATITIS C
     Route: 048
     Dates: start: 20120316
  2. REBETOL [Concomitant]
     Indication: HEPATITIS C
     Dates: start: 20120316
  3. PEGASYS [Concomitant]
     Indication: HEPATITIS C
     Route: 058
     Dates: start: 20111101

REACTIONS (4)
  - HYPERSENSITIVITY [None]
  - ANORECTAL DISCOMFORT [None]
  - RASH GENERALISED [None]
  - THROMBOCYTOPENIA [None]
